FAERS Safety Report 15751700 (Version 1)
Quarter: 2018Q4

REPORT INFORMATION
  Report Type: Spontaneous
  Country: US (occurrence: US)
  Receive Date: 20181221
  Receipt Date: 20181221
  Transmission Date: 20190205
  Serious: No
  Sender: FDA-Public Use
  Company Number: US-EISAI MEDICAL RESEARCH-EC-2018-049156

PATIENT
  Age: 87 Year
  Sex: Female

DRUGS (2)
  1. DENOSUMAB [Suspect]
     Active Substance: DENOSUMAB
     Indication: FOLLICULAR THYROID CANCER
     Dosage: UNKNOWN
     Route: 048
  2. LENVATINIB [Suspect]
     Active Substance: LENVATINIB
     Indication: FOLLICULAR THYROID CANCER
     Route: 048

REACTIONS (5)
  - Dry mouth [Unknown]
  - Hypertension [Unknown]
  - Dysgeusia [Unknown]
  - Dysphagia [Unknown]
  - Fatigue [Unknown]
